FAERS Safety Report 17528651 (Version 1)
Quarter: 2020Q1

REPORT INFORMATION
  Report Type: Report from Study
  Country: CA (occurrence: CA)
  Receive Date: 20200312
  Receipt Date: 20200312
  Transmission Date: 20200409
  Serious: Yes (Death)
  Sender: FDA-Public Use
  Company Number: CA-BEH-2020114246

PATIENT
  Age: 72 Year
  Sex: Female

DRUGS (19)
  1. DILTIAZEM. [Concomitant]
     Active Substance: DILTIAZEM
  2. TUDORZA GENUAIR [Concomitant]
     Active Substance: ACLIDINIUM BROMIDE
  3. HIZENTRA [Suspect]
     Active Substance: HUMAN IMMUNOGLOBULIN G
     Indication: PRIMARY IMMUNODEFICIENCY SYNDROME
     Dosage: 7 GRAM, QW
     Route: 058
     Dates: start: 20190815, end: 202002
  4. VENTOLINE [SALBUTAMOL] [Concomitant]
     Active Substance: ALBUTEROL SULFATE
  5. UNIPHYL [Concomitant]
     Active Substance: THEOPHYLLINE ANHYDROUS
  6. RISEDRONATE [Concomitant]
     Active Substance: RISEDRONATE SODIUM
  7. MIRTAZAPINE. [Concomitant]
     Active Substance: MIRTAZAPINE
  8. SINGULAIR [Concomitant]
     Active Substance: MONTELUKAST SODIUM
  9. PANTOLOC [PANTOPRAZOLE] [Concomitant]
     Active Substance: PANTOPRAZOLE SODIUM
  10. TOBRAMYCIN. [Concomitant]
     Active Substance: TOBRAMYCIN
     Indication: DYSPNOEA
     Dosage: 80 MILLIGRAM, BID FOR SIX WEEKS
     Dates: start: 201912
  11. ACLIDINIUM BROMIDE. [Concomitant]
     Active Substance: ACLIDINIUM BROMIDE
  12. BREO ELLIPTA [Concomitant]
     Active Substance: FLUTICASONE FUROATE\VILANTEROL TRIFENATATE
  13. PREDNISONE. [Concomitant]
     Active Substance: PREDNISONE
     Dosage: 5 MILLIGRAM, QD (8 PILLS OF 5 MG REDUCING TO 4 PILLS)
     Route: 065
  14. ELIQUIS [Concomitant]
     Active Substance: APIXABAN
  15. CITALOPRAM [Concomitant]
     Active Substance: CITALOPRAM HYDROBROMIDE
  16. RIVOTRIL [Concomitant]
     Active Substance: CLONAZEPAM
  17. CALCIUM [Concomitant]
     Active Substance: CALCIUM
  18. VITAMIN D [COLECALCIFEROL] [Concomitant]
     Active Substance: CHOLECALCIFEROL
  19. AMOXICILLIN AND CLAVULANATE POTASSIUM [Concomitant]
     Active Substance: AMOXICILLIN\CLAVULANATE POTASSIUM

REACTIONS (1)
  - Death [Fatal]

NARRATIVE: CASE EVENT DATE: 20200226
